FAERS Safety Report 19394038 (Version 1)
Quarter: 2021Q2

REPORT INFORMATION
  Report Type: Spontaneous
  Country: US (occurrence: US)
  Receive Date: 20210609
  Receipt Date: 20210609
  Transmission Date: 20210717
  Serious: No
  Sender: FDA-Public Use
  Company Number: US-CIPLA LTD.-2021US03961

PATIENT

DRUGS (4)
  1. OXYGEN. [Suspect]
     Active Substance: OXYGEN
     Dosage: REQUIRING UP TO 6 L OF OXYGEN, VIA NASAL CANNULA
     Route: 045
  2. LOPINAVIR/RITONAVIR [Suspect]
     Active Substance: LOPINAVIR\RITONAVIR
     Indication: COVID-19
     Dosage: UNK
     Route: 065
  3. OXYGEN. [Suspect]
     Active Substance: OXYGEN
     Indication: OXYGEN THERAPY
     Dosage: 2 L OF OXYGEN, VIA NASAL CANNULA
     Route: 045
  4. HYDROXYCHLOROQUINE [Suspect]
     Active Substance: HYDROXYCHLOROQUINE
     Indication: COVID-19
     Dosage: UNK
     Route: 065

REACTIONS (4)
  - Off label use [Unknown]
  - Exposure during pregnancy [Unknown]
  - Product use in unapproved indication [Unknown]
  - No adverse event [Unknown]
